FAERS Safety Report 5900765-3 (Version None)
Quarter: 2008Q3

REPORT INFORMATION
  Report Type: 
  Country: None (occurrence: None)
  Receive Date: 20080929
  Receipt Date: 20080917
  Transmission Date: 20090109
  Serious: Yes (Death)
  Sender: FDA-Public Use
  Company Number: US-RANBAXY-2008RR-18165

PATIENT
  Age: 56 Year
  Sex: Male

DRUGS (5)
  1. METFORMIN HCL [Suspect]
     Indication: TYPE 2 DIABETES MELLITUS
     Dosage: 500 MG, BID
  2. CIPROFLOXACIN [Concomitant]
     Indication: URINARY TRACT INFECTION
     Route: 048
  3. PANTOPRAZOLE SODIUM [Concomitant]
  4. LEVOTHYROXINE SODIUM [Concomitant]
  5. GLYBURIDE [Concomitant]

REACTIONS (1)
  - HAEMOLYTIC ANAEMIA [None]
